APPROVED DRUG PRODUCT: EPINEPHRINE
Active Ingredient: EPINEPHRINE
Strength: 0.2MG/INH
Dosage Form/Route: AEROSOL, METERED;INHALATION
Application: A087907 | Product #001
Applicant: ARMSTRONG PHARMACEUTICALS INC
Approved: May 23, 1984 | RLD: No | RS: No | Type: DISCN